FAERS Safety Report 7817446-1 (Version None)
Quarter: 2011Q4

REPORT INFORMATION
  Report Type: 
  Country: None (occurrence: None)
  Receive Date: 20111017
  Receipt Date: 20111011
  Transmission Date: 20120403
  Serious: Yes (Death)
  Sender: FDA-Public Use
  Company Number: CA-ROCHE-1004047

PATIENT
  Sex: Female
  Weight: 79.45 kg

DRUGS (15)
  1. IRON [Concomitant]
  2. MABTHERA [Suspect]
     Indication: SCLERODERMA
     Route: 042
     Dates: start: 20110515, end: 20110607
  3. EFFEXOR [Concomitant]
  4. SEROQUEL [Concomitant]
  5. MYCOPHENOLATE MOFETIL [Concomitant]
  6. MINOCYCLINE HCL [Concomitant]
  7. VALTREX [Concomitant]
  8. NEXIUM [Concomitant]
  9. PREDNISONE [Concomitant]
  10. NIFEDIPINE [Concomitant]
  11. SEPTRA [Concomitant]
  12. SILDENAFIL CITRATE [Concomitant]
  13. PLAQUENIL [Concomitant]
  14. ZOPICLONE [Concomitant]
  15. DICLOFENAC [Concomitant]

REACTIONS (1)
  - DEATH [None]
